FAERS Safety Report 18221933 (Version 1)
Quarter: 2020Q3

REPORT INFORMATION
  Report Type: Spontaneous
  Country: US (occurrence: US)
  Receive Date: 20200831
  Receipt Date: 20200831
  Transmission Date: 20201103
  Serious: Yes (Hospitalization)
  Sender: FDA-Public Use
  Company Number: None

PATIENT
  Age: 68 Year
  Sex: Male

DRUGS (15)
  1. OXYCYCL HYC [Concomitant]
  2. ONDANSETRON [Concomitant]
     Active Substance: ONDANSETRON
  3. METHOTREXATE 50MG/2ML SDV W/PRES [Suspect]
     Active Substance: METHOTREXATE
  4. TRAMADOL HCL [Concomitant]
     Active Substance: TRAMADOL HYDROCHLORIDE
  5. HYDROMORPHON [Concomitant]
     Active Substance: HYDROMORPHONE
  6. LACTULOSE. [Concomitant]
     Active Substance: LACTULOSE
  7. OLANZAPINE. [Concomitant]
     Active Substance: OLANZAPINE
  8. METHOTREXATE 50MG/2ML SDV W/PRES [Suspect]
     Active Substance: METHOTREXATE
     Route: 058
  9. SMZ/TMP DS [Concomitant]
     Active Substance: SULFAMETHOXAZOLE\TRIMETHOPRIM
  10. METHOTREXATE 50MG/2ML SDV W/PRES [Suspect]
     Active Substance: METHOTREXATE
     Indication: RHEUMATOID ARTHRITIS
     Route: 058
     Dates: start: 20180127
  11. PROCHLORPER [Concomitant]
  12. SOD CHLORIDE [Concomitant]
     Active Substance: SODIUM CHLORIDE
  13. AMOXICILLIN. [Concomitant]
     Active Substance: AMOXICILLIN
  14. DICYCLOMINE [Concomitant]
     Active Substance: DICYCLOMINE HYDROCHLORIDE
  15. HUMIRA SYR [Concomitant]

REACTIONS (2)
  - Neoplasm malignant [None]
  - Therapy interrupted [None]

NARRATIVE: CASE EVENT DATE: 202007
